FAERS Safety Report 4626533-0 (Version None)
Quarter: 2005Q1

REPORT INFORMATION
  Report Type: 
  Country: None (occurrence: None)
  Receive Date: 20050330
  Receipt Date: 20050310
  Transmission Date: 20050727
  Serious: Yes (Death)
  Sender: FDA-Public Use
  Company Number: US_010973409

PATIENT
  Age: 40 Year
  Sex: Male
  Weight: 111 kg

DRUGS (2)
  1. ZYPREXA [Suspect]
     Indication: BRAIN DAMAGE
     Dosage: 15 MG/2 DAY
     Dates: start: 20000801
  2. ADDERALL 10 [Concomitant]

REACTIONS (5)
  - APPENDICECTOMY [None]
  - CHOLECYSTITIS INFECTIVE [None]
  - CHOLELITHIASIS [None]
  - PRESCRIBED OVERDOSE [None]
  - WEIGHT INCREASED [None]
